FAERS Safety Report 7315518-1 (Version None)
Quarter: 2011Q1

REPORT INFORMATION
  Report Type: 
  Country: None (occurrence: None)
  Receive Date: 20110218
  Receipt Date: 20110218
  Transmission Date: 20110831
  Serious: Yes (Hospitalization)
  Sender: FDA-Public Use
  Company Number: None

PATIENT
  Age: 79 Year
  Sex: Female
  Weight: 64.7 kg

DRUGS (9)
  1. CALCIUM [Concomitant]
  2. BONIVA [Concomitant]
  3. PROTONIX [Concomitant]
  4. COUMADIN [Suspect]
     Indication: PULMONARY EMBOLISM
     Dosage: 5MG ALTERNATING DAILY PO
     Route: 048
  5. COUMADIN [Suspect]
     Indication: PULMONARY EMBOLISM
     Dosage: 2MG ALTERNATING DAILY PO.
     Route: 048
  6. FOLATE [Concomitant]
  7. WELLBUTRIN SR [Concomitant]
  8. PREDNISONE [Concomitant]
  9. ARICEPT [Concomitant]

REACTIONS (7)
  - URINARY TRACT INFECTION [None]
  - FALL [None]
  - JOINT EFFUSION [None]
  - ARTHRALGIA [None]
  - INTERNATIONAL NORMALISED RATIO INCREASED [None]
  - JOINT SWELLING [None]
  - HAEMARTHROSIS [None]
